FAERS Safety Report 5125186-5 (Version None)
Quarter: 2006Q4

REPORT INFORMATION
  Report Type: 
  Country: None (occurrence: None)
  Receive Date: 20061011
  Receipt Date: 20061009
  Transmission Date: 20070319
  Serious: Yes (Hospitalization, Other)
  Sender: FDA-Public Use
  Company Number: US-BRISTOL-MYERS SQUIBB COMPANY-13534797

PATIENT
  Age: 72 Year
  Sex: Male

DRUGS (1)
  1. DEFINITY [Suspect]
     Indication: ECHOCARDIOGRAM

REACTIONS (5)
  - CHEST DISCOMFORT [None]
  - CYANOSIS [None]
  - DYSPNOEA [None]
  - HYPOTENSION [None]
  - OXYGEN SATURATION DECREASED [None]
